FAERS Safety Report 6092942-9 (Version None)
Quarter: 2009Q1

REPORT INFORMATION
  Report Type: 
  Country: None (occurrence: None)
  Receive Date: 20090223
  Receipt Date: 20090212
  Transmission Date: 20090719
  Serious: Yes (Hospitalization, Disabling)
  Sender: FDA-Public Use
  Company Number: 1000004799

PATIENT
  Age: 65 Year
  Sex: Female

DRUGS (10)
  1. ESCITALOPRAM [Suspect]
     Dosage: 10 MG (10 MG, 1 IN 1 D), ORAL
     Route: 048
  2. ZANTAC (TABLETS) [Concomitant]
  3. MOVICOL (TABLETS) [Concomitant]
  4. ZESTORETIC [Concomitant]
  5. LIPITOR [Concomitant]
  6. TAVANIC (TABLETS) [Concomitant]
  7. MYOLASTAN (TABLETS) [Concomitant]
  8. DAFALGAN (TABLETS) [Concomitant]
  9. SIFROL (TABLETS) [Concomitant]
  10. TRAZOLAN (TABLETS) [Concomitant]

REACTIONS (3)
  - HAEMATOMA [None]
  - PARAPLEGIA [None]
  - SPINAL CORD HAEMORRHAGE [None]
